FAERS Safety Report 24905858 (Version 1)
Quarter: 2025Q1

REPORT INFORMATION
  Report Type: Spontaneous
  Country: MX (occurrence: MX)
  Receive Date: 20250130
  Receipt Date: 20250130
  Transmission Date: 20250409
  Serious: Yes (Other)
  Sender: SANDOZ
  Company Number: MX-002147023-NVSC2023MX249592

PATIENT
  Age: 67 Year
  Sex: Female
  Weight: 78 kg

DRUGS (8)
  1. KISQALI [Suspect]
     Active Substance: RIBOCICLIB
     Indication: Breast cancer
     Route: 048
  2. KISQALI [Suspect]
     Active Substance: RIBOCICLIB
     Dosage: 3 DOSAGE FORM, 3 X 200MG/ 600 MG QD IN MORNING
     Route: 048
     Dates: start: 20231116
  3. KISQALI [Suspect]
     Active Substance: RIBOCICLIB
     Dosage: 3 DOSAGE FORM, QD
     Route: 048
     Dates: start: 20221116, end: 20241101
  4. KISQALI [Suspect]
     Active Substance: RIBOCICLIB
     Route: 048
     Dates: start: 201611
  5. LETROZOLE [Suspect]
     Active Substance: LETROZOLE
     Indication: Product used for unknown indication
     Dosage: 1, QD
     Route: 065
  6. ZOMETA [Suspect]
     Active Substance: ZOLEDRONIC ACID
     Indication: Product used for unknown indication
     Route: 065
  7. ANASTROZOLE [Concomitant]
     Active Substance: ANASTROZOLE
     Indication: Product used for unknown indication
     Route: 065
  8. TROVIT [Concomitant]
     Indication: Product used for unknown indication
     Dosage: 1 UNK, QD
     Route: 065

REACTIONS (31)
  - Neoplasm progression [Unknown]
  - Breast cancer [Unknown]
  - Malignant neoplasm progression [Unknown]
  - Feeling abnormal [Unknown]
  - Gait disturbance [Unknown]
  - Movement disorder [Unknown]
  - Bone demineralisation [Unknown]
  - Ill-defined disorder [Unknown]
  - Retching [Unknown]
  - Dysstasia [Recovering/Resolving]
  - Alopecia [Unknown]
  - Pruritus [Unknown]
  - Dry skin [Unknown]
  - Mass [Unknown]
  - Oedema [Unknown]
  - Skin fissures [Unknown]
  - Weight decreased [Unknown]
  - Discomfort [Unknown]
  - Malaise [Recovered/Resolved]
  - Pain [Unknown]
  - Fatigue [Unknown]
  - Calcium deficiency [Unknown]
  - Constipation [Recovered/Resolved]
  - Abdominal pain upper [Unknown]
  - Vomiting [Unknown]
  - Nausea [Unknown]
  - Decreased appetite [Unknown]
  - Diarrhoea [Unknown]
  - Drug ineffective [Unknown]
  - Inappropriate schedule of product administration [Unknown]
  - Product availability issue [Unknown]

NARRATIVE: CASE EVENT DATE: 20231116
